FAERS Safety Report 11729918 (Version 1)
Quarter: 2015Q4

REPORT INFORMATION
  Report Type: Spontaneous
  Country: US (occurrence: US)
  Receive Date: 20151110
  Receipt Date: 20151110
  Transmission Date: 20160304
  Serious: No
  Sender: FDA-Public Use
  Company Number: US-ELI_LILLY_AND_COMPANY-US201111004947

PATIENT
  Sex: Male

DRUGS (1)
  1. FORTEO [Suspect]
     Active Substance: TERIPARATIDE
     Indication: OSTEOPOROSIS
     Dosage: 20 UG, QD
     Route: 058
     Dates: start: 20111005, end: 201112

REACTIONS (4)
  - Injection site pain [Not Recovered/Not Resolved]
  - Pain in extremity [Recovering/Resolving]
  - Sleep disorder due to a general medical condition [Unknown]
  - Arthralgia [Recovering/Resolving]
